FAERS Safety Report 12900215 (Version 1)
Quarter: 2016Q4

REPORT INFORMATION
  Report Type: Spontaneous
  Country: US (occurrence: US)
  Receive Date: 20161028
  Receipt Date: 20161028
  Transmission Date: 20170207
  Serious: Yes (Hospitalization)
  Sender: FDA-Public Use
  Company Number: None

PATIENT
  Age: 70 Year
  Sex: Male
  Weight: 133.4 kg

DRUGS (1)
  1. CLOPIDOGREL [Suspect]
     Active Substance: CLOPIDOGREL BISULFATE
     Indication: ARTERIAL STENT INSERTION
     Route: 048
     Dates: start: 20100424, end: 20161018

REACTIONS (3)
  - Haematemesis [None]
  - Gastric ulcer [None]
  - Gastric haemorrhage [None]

NARRATIVE: CASE EVENT DATE: 20161018
